FAERS Safety Report 7264462-7 (Version None)
Quarter: 2011Q1

REPORT INFORMATION
  Report Type: 
  Country: None (occurrence: None)
  Receive Date: 20110131
  Receipt Date: 20110120
  Transmission Date: 20110831
  Serious: Yes (Other)
  Sender: FDA-Public Use
  Company Number: US-US-EMD SERONO, INC.-7037605

PATIENT
  Sex: Female

DRUGS (5)
  1. NAPROSYN [Concomitant]
     Indication: ARTHRALGIA
  2. ALBUTEROL [Concomitant]
     Indication: ASTHMA
  3. SAIZEN [Suspect]
     Indication: GROWTH HORMONE DEFICIENCY
     Dates: start: 20101202
  4. FLOVENT [Concomitant]
     Indication: ASTHMA
  5. HYDROCORTISONE CREAM [Concomitant]
     Indication: ECZEMA

REACTIONS (2)
  - EVANS SYNDROME [None]
  - SYSTEMIC LUPUS ERYTHEMATOSUS [None]
